FAERS Safety Report 15140769 (Version 3)
Quarter: 2019Q1

REPORT INFORMATION
  Report Type: Spontaneous
  Country: US (occurrence: US)
  Receive Date: 20180713
  Receipt Date: 20190318
  Transmission Date: 20190417
  Serious: Yes (Other)
  Sender: FDA-Public Use
  Company Number: US-COOPERSURGICAL, INC.-US-2018CPS032441

PATIENT

DRUGS (3)
  1. PARAGARD T 380A [Suspect]
     Active Substance: COPPER
     Indication: CONTRACEPTION
     Dosage: UNK
     Route: 015
     Dates: start: 20131024, end: 20180320
  2. VITAMINS                           /00067501/ [Concomitant]
     Active Substance: VITAMINS
     Indication: PRODUCT USED FOR UNKNOWN INDICATION
     Dosage: UNK
     Route: 065
  3. PROBIOTICS                         /07325001/ [Concomitant]
     Active Substance: BIFIDOBACTERIUM LONGUM\LACTOBACILLUS ACIDOPHILUS\LACTOBACILLUS RHAMNOSUS
     Indication: PRODUCT USED FOR UNKNOWN INDICATION
     Dosage: UNK
     Route: 065

REACTIONS (23)
  - Device breakage [Recovered/Resolved]
  - Arthralgia [Unknown]
  - Complication of device removal [Not Recovered/Not Resolved]
  - Nausea [Unknown]
  - Frustration tolerance decreased [Unknown]
  - Impaired work ability [Unknown]
  - Pain in jaw [Recovering/Resolving]
  - Infusion site phlebitis [Unknown]
  - Mobility decreased [Unknown]
  - Haemorrhage [Recovered/Resolved]
  - Embedded device [Not Recovered/Not Resolved]
  - Dizziness [Unknown]
  - Hypomenorrhoea [Unknown]
  - Foreign body in reproductive tract [Not Recovered/Not Resolved]
  - Uterine spasm [Unknown]
  - Headache [Recovered/Resolved]
  - Menorrhagia [Unknown]
  - Infusion site pain [Recovered/Resolved]
  - Infusion site mobility decreased [Recovered/Resolved]
  - Dysmenorrhoea [Unknown]
  - Gait disturbance [Unknown]
  - Device dislocation [Not Recovered/Not Resolved]
  - Procedural pain [Unknown]

NARRATIVE: CASE EVENT DATE: 2013
